FAERS Safety Report 10431270 (Version 3)
Quarter: 2014Q4

REPORT INFORMATION
  Report Type: Spontaneous
  Country: SE (occurrence: SE)
  Receive Date: 20140904
  Receipt Date: 20141114
  Transmission Date: 20150528
  Serious: Yes (Other)
  Sender: FDA-Public Use
  Company Number: SE-PFIZER INC-2014244108

PATIENT
  Age: 72 Year
  Sex: Female
  Weight: 153 kg

DRUGS (1)
  1. OESTRING [Suspect]
     Active Substance: ESTRADIOL
     Indication: ATROPHIC VULVOVAGINITIS
     Dosage: UNK

REACTIONS (2)
  - Product quality issue [Unknown]
  - Vulval laceration [Recovered/Resolved]
